FAERS Safety Report 8098531-9 (Version None)
Quarter: 2012Q1

REPORT INFORMATION
  Report Type: 
  Country: None (occurrence: None)
  Receive Date: 20120129
  Receipt Date: 20111028
  Transmission Date: 20120608
  Serious: No
  Sender: FDA-Public Use
  Company Number: US-ABBOTT-11P-163-0870244-00

PATIENT
  Sex: Female

DRUGS (2)
  1. UNKNOWN ANTI TUBERCULOSIS MEDICATIONS [Concomitant]
     Indication: TUBERCULIN TEST POSITIVE
     Dates: start: 20110101
  2. HUMIRA [Suspect]
     Indication: CROHN'S DISEASE
     Dates: start: 20111027

REACTIONS (7)
  - INJECTION SITE ERYTHEMA [None]
  - INJECTION SITE SWELLING [None]
  - HEADACHE [None]
  - DYSGEUSIA [None]
  - HYPERVENTILATION [None]
  - NAUSEA [None]
  - PARAESTHESIA [None]
